FAERS Safety Report 15582524 (Version 2)
Quarter: 2018Q4

REPORT INFORMATION
  Report Type: Report from Study
  Country: None (occurrence: BE)
  Receive Date: 20181105
  Receipt Date: 20181207
  Transmission Date: 20190205
  Serious: Yes (Other)
  Sender: FDA-Public Use
  Company Number: BE-ABBVIE-18S-013-2539207-00

PATIENT
  Sex: Female

DRUGS (3)
  1. DUODOPA [Suspect]
     Active Substance: CARBIDOPA\LEVODOPA
     Dosage: DOSES CONTINUOUSLY MONITORED AND ADAPTED
     Route: 050
     Dates: start: 20111007, end: 20180606
  2. DUODOPA [Suspect]
     Active Substance: CARBIDOPA\LEVODOPA
     Dosage: MD= 5.5ML, CD= 3.0ML/HR DURING 16HRS,  ED= 1.2ML
     Route: 050
     Dates: start: 20180606, end: 20181024
  3. DUODOPA [Suspect]
     Active Substance: CARBIDOPA\LEVODOPA
     Indication: PARKINSON^S DISEASE
     Dosage: MD= 4ML,??CD= 1.9ML/HR DURING 16HRS,        ED= 1ML
     Route: 050
     Dates: start: 20111003, end: 20111007

REACTIONS (2)
  - Device dislocation [Not Recovered/Not Resolved]
  - General physical health deterioration [Not Recovered/Not Resolved]
